FAERS Safety Report 13057199 (Version 1)
Quarter: 2016Q4

REPORT INFORMATION
  Report Type: Spontaneous
  Country: US (occurrence: US)
  Receive Date: 20161223
  Receipt Date: 20161223
  Transmission Date: 20170207
  Serious: No
  Sender: FDA-Public Use
  Company Number: US-PAR PHARMACEUTICAL, INC-2016SCPR015800

PATIENT
  Age: 59 Year
  Sex: Male

DRUGS (5)
  1. TRAMADOL ER [Suspect]
     Active Substance: TRAMADOL HYDROCHLORIDE
     Indication: PAIN MANAGEMENT
     Dosage: 1 DF, OD
     Route: 048
     Dates: start: 201608
  2. TRAMADOL ER [Suspect]
     Active Substance: TRAMADOL HYDROCHLORIDE
     Dosage: 1 DF, OD
     Route: 048
     Dates: start: 2015
  3. BYSTOLIC [Concomitant]
     Active Substance: NEBIVOLOL HYDROCHLORIDE
     Indication: HYPERTENSION
     Dosage: HALF TABLET, OD
     Route: 048
  4. BENICAR [Concomitant]
     Active Substance: OLMESARTAN MEDOXOMIL
     Indication: HYPERTENSION
     Dosage: HALF TABLET, OD
     Route: 048
  5. ASPIRIN                            /00002701/ [Concomitant]
     Active Substance: ASPIRIN
     Indication: BLOOD CHOLESTEROL INCREASED
     Dosage: 1 DF, OD
     Route: 048

REACTIONS (4)
  - Neuropathy peripheral [Recovering/Resolving]
  - Drug ineffective [Recovering/Resolving]
  - Disease recurrence [Recovering/Resolving]
  - Product quality issue [Unknown]

NARRATIVE: CASE EVENT DATE: 201608
